FAERS Safety Report 4601758-9 (Version None)
Quarter: 2005Q1

REPORT INFORMATION
  Report Type: 
  Country: None (occurrence: None)
  Receive Date: 20050308
  Receipt Date: 20030217
  Transmission Date: 20050727
  Serious: Yes (Hospitalization, Other)
  Sender: FDA-Public Use
  Company Number: DE-AMGEN-UK030924

PATIENT
  Sex: Female
  Weight: 54.5 kg

DRUGS (9)
  1. NEUPOGEN [Suspect]
     Indication: CHEMOTHERAPY
     Route: 058
     Dates: start: 20030122, end: 20030127
  2. PREDNISOLONE [Suspect]
     Route: 048
     Dates: start: 20030117, end: 20030121
  3. CYCLOPHOSPHAMIDE [Concomitant]
  4. DOXORUBICIN HCL [Concomitant]
  5. VINCRISTINE [Concomitant]
  6. LEVOFLOXACIN [Concomitant]
     Route: 048
     Dates: start: 20021220, end: 20030326
  7. ITRACONAZOLE [Concomitant]
     Route: 048
     Dates: start: 20021220, end: 20030214
  8. PANTOPRAZOLE SODIUM [Concomitant]
     Route: 048
     Dates: start: 20021115, end: 20030326
  9. ORGAMETRIL [Concomitant]
     Route: 048
     Dates: start: 20021115, end: 20030301

REACTIONS (2)
  - ACUTE FEBRILE NEUTROPHILIC DERMATOSIS [None]
  - PULMONARY EMBOLISM [None]
